FAERS Safety Report 25378492 (Version 3)
Quarter: 2025Q3

REPORT INFORMATION
  Report Type: Report from Study
  Country: CA (occurrence: CA)
  Receive Date: 20250530
  Receipt Date: 20250811
  Transmission Date: 20251021
  Serious: Yes (Hospitalization, Other)
  Sender: TAKEDA
  Company Number: CA-TAKEDA-2025TUS050372

PATIENT
  Sex: Female

DRUGS (4)
  1. VEDOLIZUMAB [Suspect]
     Active Substance: VEDOLIZUMAB
     Indication: Crohn^s disease
     Dates: start: 20250515, end: 20250626
  2. FERROUS GLUCONATE [Concomitant]
     Active Substance: FERROUS GLUCONATE
  3. APIXABAN [Concomitant]
     Active Substance: APIXABAN
  4. BISOPROLOL [Concomitant]
     Active Substance: BISOPROLOL

REACTIONS (2)
  - Crohn^s disease [Unknown]
  - Treatment failure [Unknown]
